FAERS Safety Report 8740254 (Version 3)
Quarter: 2012Q4

REPORT INFORMATION
  Report Type: 
  Country: FR (occurrence: FR)
  Receive Date: 20120823
  Receipt Date: 20120831
  Transmission Date: 20130627
  Serious: Yes (Hospitalization, Other)
  Sender: FDA-Public Use
  Company Number: FR-PFIZER INC-2012201696

PATIENT
  Age: 64 Year
  Sex: Male

DRUGS (6)
  1. TAHOR [Suspect]
     Dosage: 40 mg, daily
     Route: 048
     Dates: start: 201105, end: 20120614
  2. APROVEL [Suspect]
     Indication: ACUTE CORONARY SYNDROME
     Dosage: 75 mg, daily
     Route: 048
     Dates: start: 20120406, end: 20120614
  3. LASILIX [Suspect]
     Dosage: UNK
     Route: 048
     Dates: start: 201108, end: 20120614
  4. PROPRANOLOL [Suspect]
     Dosage: 160 mg, 1x/day
     Route: 048
     Dates: start: 201105, end: 20120614
  5. LANTUS [Concomitant]
     Indication: TYPE 1 DIABETES MELLITUS
     Dosage: 22 IU, daily
     Route: 058
     Dates: start: 201201
  6. NOVORAPID [Concomitant]
     Indication: TYPE 1 DIABETES MELLITUS
     Dosage: 10 IU, 3x/day
     Route: 058
     Dates: start: 201201

REACTIONS (10)
  - Rhabdomyolysis [Recovered/Resolved]
  - Renal failure acute [Recovered/Resolved]
  - Hepatocellular injury [Recovered/Resolved]
  - Cholestasis [Recovered/Resolved]
  - Hypotension [Unknown]
  - Bradycardia [Unknown]
  - Haemoglobin decreased [Unknown]
  - Lipase increased [Unknown]
  - Blood bicarbonate decreased [None]
  - Platelet count decreased [None]
